FAERS Safety Report 8401317-6 (Version None)
Quarter: 2012Q2

REPORT INFORMATION
  Report Type: 
  Country: None (occurrence: None)
  Receive Date: 20120601
  Receipt Date: 20120522
  Transmission Date: 20120825
  Serious: Yes (Hospitalization)
  Sender: FDA-Public Use
  Company Number: FR-MPIJNJ-2012-03365

PATIENT

DRUGS (5)
  1. NEUPOGEN [Concomitant]
     Indication: APLASIA
     Dosage: UNK
     Route: 058
     Dates: start: 20120504
  2. VELCADE [Suspect]
     Indication: MANTLE CELL LYMPHOMA
     Dosage: 1.3 MG/M2, UNK
     Route: 058
     Dates: start: 20120316, end: 20120430
  3. MABTHERA [Suspect]
     Indication: MANTLE CELL LYMPHOMA
     Dosage: 375 MG/M2, UNK
     Route: 042
     Dates: start: 20120315, end: 20120423
  4. LEVACT [Suspect]
     Indication: MANTLE CELL LYMPHOMA
     Dosage: 90 MG/M2, UNK
     Route: 042
     Dates: start: 20120315, end: 20120424
  5. DEXAMETHASONE [Suspect]
     Indication: MANTLE CELL LYMPHOMA
     Dosage: 40 MG, UNK
     Route: 042
     Dates: start: 20120315, end: 20120424

REACTIONS (1)
  - FEBRILE NEUTROPENIA [None]
